FAERS Safety Report 23321170 (Version 1)
Quarter: 2023Q4

REPORT INFORMATION
  Report Type: Spontaneous
  Country: FR (occurrence: FR)
  Receive Date: 20231220
  Receipt Date: 20231220
  Transmission Date: 20240110
  Serious: Yes (Other)
  Sender: FDA-Public Use
  Company Number: FR-009507513-2312FRA006890

PATIENT
  Age: 82 Year
  Sex: Female

DRUGS (4)
  1. KEYTRUDA [Suspect]
     Active Substance: PEMBROLIZUMAB
     Indication: Colorectal cancer
     Dosage: 200 MG
     Dates: start: 20221212, end: 20230619
  2. ASPIRIN [Concomitant]
     Active Substance: ASPIRIN
  3. HERBALS\VITIS VINIFERA LEAF [Concomitant]
     Active Substance: HERBALS\VITIS VINIFERA LEAF
  4. IRBESARTAN [Concomitant]
     Active Substance: IRBESARTAN
     Dosage: STRENGTH: 300 DOSAGE FORM

REACTIONS (1)
  - Retinopathy [Recovering/Resolving]
